FAERS Safety Report 16045796 (Version 1)
Quarter: 2019Q1

REPORT INFORMATION
  Report Type: Spontaneous
  Country: US (occurrence: US)
  Receive Date: 20190307
  Receipt Date: 20190307
  Transmission Date: 20190418
  Serious: Yes (Life-Threatening, Hospitalization, Other)
  Sender: FDA-Public Use
  Company Number: US-BION-007832

PATIENT
  Age: 48 Year
  Sex: Female

DRUGS (1)
  1. LOPERAMIDE HYDROCHLORIDE. [Suspect]
     Active Substance: LOPERAMIDE HYDROCHLORIDE
     Indication: DIARRHOEA
     Dosage: 6 TO 8 TABLETS OF LOPERAMIDE A DAY

REACTIONS (3)
  - Brugada syndrome [Recovered/Resolved]
  - Syncope [Unknown]
  - Overdose [Unknown]
